FAERS Safety Report 15482794 (Version 2)
Quarter: 2018Q4

REPORT INFORMATION
  Report Type: Report from Study
  Country: FR (occurrence: FR)
  Receive Date: 20181010
  Receipt Date: 20181022
  Transmission Date: 20190205
  Serious: Yes (Death, Other)
  Sender: FDA-Public Use
  Company Number: FR-PFIZER INC-2018410204

PATIENT
  Age: 60 Year
  Sex: Female

DRUGS (2)
  1. INLYTA [Suspect]
     Active Substance: AXITINIB
     Dosage: 5 MG, TWICE A DAY
     Dates: start: 20180527, end: 20180609
  2. INLYTA [Suspect]
     Active Substance: AXITINIB
     Dosage: 7 MG, TWICE A DAY
     Dates: start: 20180610

REACTIONS (1)
  - Neoplasm progression [Fatal]
